FAERS Safety Report 23037385 (Version 1)
Quarter: 2023Q4

REPORT INFORMATION
  Report Type: Spontaneous
  Country: US (occurrence: US)
  Receive Date: 20231006
  Receipt Date: 20231006
  Transmission Date: 20240110
  Serious: No
  Sender: FDA-Public Use
  Company Number: US-Indivior Limited-INDV-139294-2023

PATIENT

DRUGS (1)
  1. BUPRENORPHINE [Suspect]
     Active Substance: BUPRENORPHINE
     Indication: Drug dependence
     Dosage: UNK
     Route: 055

REACTIONS (4)
  - Off label use [Unknown]
  - Drug diversion [Unknown]
  - Wrong technique in product usage process [Unknown]
  - Intentional product use issue [Unknown]
